FAERS Safety Report 7210589-5 (Version None)
Quarter: 2011Q1

REPORT INFORMATION
  Report Type: 
  Country: None (occurrence: None)
  Receive Date: 20110105
  Receipt Date: 20101228
  Transmission Date: 20110831
  Serious: Yes (Hospitalization)
  Sender: FDA-Public Use
  Company Number: PHHY2010DE78131

PATIENT
  Sex: Female

DRUGS (1)
  1. EXTAVIA [Suspect]
     Indication: MULTIPLE SCLEROSIS
     Dosage: UNK, QOD
     Route: 058
     Dates: start: 20100906, end: 20101006

REACTIONS (4)
  - PYREXIA [None]
  - INTERVERTEBRAL DISC OPERATION [None]
  - FATIGUE [None]
  - PAIN IN EXTREMITY [None]
